FAERS Safety Report 11125221 (Version 1)
Quarter: 2015Q2

REPORT INFORMATION
  Report Type: Report from Study
  Country: US (occurrence: US)
  Receive Date: 20150520
  Receipt Date: 20150520
  Transmission Date: 20150821
  Serious: Yes (Other)
  Sender: FDA-Public Use
  Company Number: US-BAYER-2015-236339

PATIENT
  Age: 22 Year
  Sex: Female

DRUGS (2)
  1. BETASERON [Suspect]
     Active Substance: INTERFERON BETA-1B
     Indication: MULTIPLE SCLEROSIS
     Dosage: STANDARD TITRATION DOSE, QOD
     Route: 058
     Dates: start: 2013, end: 2013
  2. BETASERON [Suspect]
     Active Substance: INTERFERON BETA-1B
     Indication: MULTIPLE SCLEROSIS
     Dosage: 0.25 MG, QOD
     Route: 058
     Dates: start: 2013

REACTIONS (5)
  - Muscle twitching [None]
  - Pain [None]
  - Disturbance in attention [None]
  - Confusional state [None]
  - Injection site bruising [None]

NARRATIVE: CASE EVENT DATE: 2013
